FAERS Safety Report 18184405 (Version 3)
Quarter: 2020Q4

REPORT INFORMATION
  Report Type: Spontaneous
  Country: US (occurrence: US)
  Receive Date: 20200824
  Receipt Date: 20201127
  Transmission Date: 20210113
  Serious: No
  Sender: FDA-Public Use
  Company Number: US-SA-2020SA223336

PATIENT

DRUGS (3)
  1. PREDNISONE. [Suspect]
     Active Substance: PREDNISONE
     Indication: WHEEZING
  2. DUPIXENT [Suspect]
     Active Substance: DUPILUMAB
     Indication: ASTHMA
     Dosage: 300 MG, QOW
     Route: 058
     Dates: start: 20200511
  3. PREDNISONE. [Suspect]
     Active Substance: PREDNISONE
     Indication: DYSPNOEA
     Dosage: UNK
     Route: 065

REACTIONS (7)
  - Eye pain [Unknown]
  - Dyspnoea [Unknown]
  - Wheezing [Unknown]
  - Fatigue [Unknown]
  - Fall [Unknown]
  - Drug ineffective [Unknown]
  - Rib fracture [Unknown]

NARRATIVE: CASE EVENT DATE: 2020
